FAERS Safety Report 7216070-1 (Version None)
Quarter: 2011Q1

REPORT INFORMATION
  Report Type: 
  Country: None (occurrence: None)
  Receive Date: 20110107
  Receipt Date: 20110105
  Transmission Date: 20110831
  Serious: Yes (Other)
  Sender: FDA-Public Use
  Company Number: GB-PFIZER INC-2010152098

PATIENT
  Age: 35 Year
  Sex: Female
  Weight: 117 kg

DRUGS (6)
  1. LYMECYCLINE [Concomitant]
     Dosage: 408 UNK, 2X/DAY
     Route: 048
  2. FOLIC ACID [Concomitant]
     Dosage: 5 MG, UNK
     Route: 048
  3. PYRIDOXINE [Concomitant]
     Dosage: 50 MG, UNK
     Route: 048
  4. CO-CODAMOL [Concomitant]
     Dosage: 530 MG, UNK
     Route: 048
  5. VENLAFAXINE HCL [Suspect]
     Dosage: 225 MG, UNK
     Dates: start: 20100801, end: 20100907
  6. RISPERIDONE [Concomitant]
     Dosage: 1 MG, 2X/DAY
     Route: 048

REACTIONS (2)
  - DEPRESSED MOOD [None]
  - INTENTIONAL SELF-INJURY [None]
